FAERS Safety Report 8680223 (Version 3)
Quarter: 2012Q4

REPORT INFORMATION
  Report Type: Report from Study
  Country: GB (occurrence: GB)
  Receive Date: 20120724
  Receipt Date: 20120926
  Transmission Date: 20130627
  Serious: Yes (Hospitalization)
  Sender: FDA-Public Use
  Company Number: GB-ROCHE-1091089

PATIENT
  Age: 2 Year
  Sex: Male
  Weight: 12.8 kg

DRUGS (4)
  1. AVASTIN [Suspect]
     Indication: NEOPLASM MALIGNANT
     Dosage: date of last dose prior to SAE 12/Jul/2012
     Route: 042
     Dates: start: 20111117
  2. VINORELBINE TARTRATE [Suspect]
     Indication: NEOPLASM MALIGNANT
     Dosage: date of last dose prior to SAE 12/Jul/2012
     Route: 042
     Dates: start: 20120614
  3. CYCLOPHOSPHAMIDE [Suspect]
     Indication: NEOPLASM MALIGNANT
     Dosage: date of last dose prior to SAE 17/jun/2012
     Route: 048
     Dates: start: 20120614
  4. METOCLOPRAMIDE [Concomitant]
     Route: 065
     Dates: start: 20111115

REACTIONS (1)
  - Torus fracture [Recovered/Resolved]
